FAERS Safety Report 8054340-8 (Version None)
Quarter: 2012Q1

REPORT INFORMATION
  Report Type: 
  Country: None (occurrence: None)
  Receive Date: 20120118
  Receipt Date: 20120116
  Transmission Date: 20120608
  Serious: Yes (Death)
  Sender: FDA-Public Use
  Company Number: PHHY2012AR003982

PATIENT
  Sex: Female

DRUGS (1)
  1. ONBREZ [Suspect]

REACTIONS (1)
  - NEOPLASM MALIGNANT [None]
